FAERS Safety Report 4468149-5 (Version None)
Quarter: 2004Q4

REPORT INFORMATION
  Report Type: 
  Country: None (occurrence: None)
  Receive Date: 20041001
  Receipt Date: 20040921
  Transmission Date: 20050328
  Serious: Yes (Hospitalization)
  Sender: FDA-Public Use
  Company Number: TPA2004A01135

PATIENT
  Age: 69 Year
  Sex: Female
  Weight: 108.8633 kg

DRUGS (2)
  1. ACTOS [Suspect]
     Dosage: PER ORAL
     Route: 048
     Dates: end: 20030801
  2. HUMALOG MIX 75/25 [Suspect]
     Dosage: 26 U QAM + 19 U QPM, 1 IN 1 D, INJECTION

REACTIONS (6)
  - HYPOTENSION [None]
  - KIDNEY INFECTION [None]
  - MEMORY IMPAIRMENT [None]
  - SEPSIS [None]
  - TREATMENT NONCOMPLIANCE [None]
  - WEIGHT INCREASED [None]
